FAERS Safety Report 18344013 (Version 1)
Quarter: 2020Q4

REPORT INFORMATION
  Report Type: Spontaneous
  Country: US (occurrence: US)
  Receive Date: 20201002
  Receipt Date: 20201002
  Transmission Date: 20210114
  Serious: Yes (Hospitalization)
  Sender: FDA-Public Use
  Company Number: None

PATIENT
  Sex: Female
  Weight: 96.1 kg

DRUGS (7)
  1. VINCRISTINE SULFATE. [Suspect]
     Active Substance: VINCRISTINE SULFATE
     Dates: end: 20180129
  2. DAUNORUBICIN [Suspect]
     Active Substance: DAUNORUBICIN
     Dates: end: 20180129
  3. PREDNISONE. [Suspect]
     Active Substance: PREDNISONE
     Dates: end: 20180114
  4. CYTARABINE. [Suspect]
     Active Substance: CYTARABINE
     Dates: end: 20180108
  5. RITUXIMAB. [Suspect]
     Active Substance: RITUXIMAB
     Dates: end: 20180115
  6. DEXAMETHASONE. [Suspect]
     Active Substance: DEXAMETHASONE
     Dates: end: 20180114
  7. METHOTREXATE. [Suspect]
     Active Substance: METHOTREXATE
     Dates: end: 20180122

REACTIONS (8)
  - Asthenia [None]
  - Vascular device infection [None]
  - Tachycardia [None]
  - Blood culture positive [None]
  - Streptococcal infection [None]
  - Hypotension [None]
  - Fatigue [None]
  - Performance status decreased [None]

NARRATIVE: CASE EVENT DATE: 20180203
